FAERS Safety Report 22287171 (Version 2)
Quarter: 2023Q2

REPORT INFORMATION
  Report Type: Spontaneous
  Country: CZ (occurrence: CZ)
  Receive Date: 20230505
  Receipt Date: 20230510
  Transmission Date: 20230721
  Serious: Yes (Hospitalization, Other)
  Sender: FDA-Public Use
  Company Number: CZ-AstraZeneca-2023A092679

PATIENT
  Age: 58 Year
  Sex: Female

DRUGS (1)
  1. FULVESTRANT [Suspect]
     Active Substance: FULVESTRANT
     Indication: Product used for unknown indication
     Dosage: UNK
     Route: 030
     Dates: start: 20210930

REACTIONS (12)
  - Metastasis [Unknown]
  - Head injury [Unknown]
  - Circulatory collapse [Unknown]
  - Subdural haematoma [Unknown]
  - Brain oedema [Unknown]
  - Metastases to central nervous system [Not Recovered/Not Resolved]
  - Retinal pigment epithelial tear [Unknown]
  - Anxiety [Unknown]
  - Psychomotor hyperactivity [Unknown]
  - Hypermetropia [Unknown]
  - Ill-defined disorder [Unknown]
  - Anaemia [Unknown]
